FAERS Safety Report 12983607 (Version 1)
Quarter: 2016Q4

REPORT INFORMATION
  Report Type: Spontaneous
  Country: US (occurrence: US)
  Receive Date: 20161129
  Receipt Date: 20161129
  Transmission Date: 20170207
  Serious: Yes (Other)
  Sender: FDA-Public Use
  Company Number: US-PROCTER+GAMBLE-GS16139806

PATIENT
  Sex: Female

DRUGS (1)
  1. PEPTO-BISMOL [Suspect]
     Active Substance: BISMUTH SUBSALICYLATE
     Dosage: TOOK A CAPFUL
     Route: 048

REACTIONS (4)
  - Burning sensation [Unknown]
  - Throat tightness [Unknown]
  - Generalised erythema [Unknown]
  - Swelling face [Unknown]
